FAERS Safety Report 9190686 (Version 1)
Quarter: 2013Q1

REPORT INFORMATION
  Report Type: Spontaneous
  Country: JP (occurrence: JP)
  Receive Date: 20130326
  Receipt Date: 20130326
  Transmission Date: 20140127
  Serious: Yes (Other)
  Sender: FDA-Public Use
  Company Number: JP-JNJFOC-20130314656

PATIENT
  Age: 79 Year
  Sex: Female
  Weight: 47 kg

DRUGS (4)
  1. REMINYL [Suspect]
     Indication: PRODUCT USED FOR UNKNOWN INDICATION
     Route: 048
     Dates: start: 20121218
  2. REMINYL [Suspect]
     Indication: PRODUCT USED FOR UNKNOWN INDICATION
     Route: 048
     Dates: start: 201209, end: 20121217
  3. MEVALOTIN [Concomitant]
     Route: 048
  4. YOKUKAN-SAN [Concomitant]
     Route: 048

REACTIONS (2)
  - Shock [Unknown]
  - Feeling abnormal [Unknown]
